FAERS Safety Report 8913557 (Version 2)
Quarter: 2012Q4

REPORT INFORMATION
  Report Type: Spontaneous
  Country: US (occurrence: None)
  Receive Date: 20121114
  Receipt Date: 20121126
  Transmission Date: 20130627
  Serious: Yes (Other)
  Sender: FDA-Public Use
  Company Number: US-GDP-12414603

PATIENT
  Age: 47 Year
  Sex: Male
  Weight: 75 kg

DRUGS (2)
  1. CLOBEX [Suspect]
     Indication: PSORIASIS
     Dosage: (1 Dosage forms, 1 in 1 Days)
     Route: 061
     Dates: start: 20120127
  2. VECTICAL (CALCITRIOL) OINTMENT 3 MCG/G(3 MICROGRAM OINTMENT) (CALCITRIOL) [Concomitant]

REACTIONS (9)
  - Hypoaesthesia [None]
  - Accidental exposure to product [None]
  - Discomfort [None]
  - Burns second degree [None]
  - Pain [None]
  - Chemical injury [None]
  - Insomnia [None]
  - Gait disturbance [None]
  - Scab [None]
